FAERS Safety Report 14121097 (Version 1)
Quarter: 2017Q4

REPORT INFORMATION
  Report Type: Spontaneous
  Country: US (occurrence: US)
  Receive Date: 20171024
  Receipt Date: 20171024
  Transmission Date: 20180321
  Serious: No
  Sender: FDA-Public Use
  Company Number: US-SA-2017SA086827

PATIENT
  Age: 45 Year
  Sex: Male
  Weight: 88.5 kg

DRUGS (1)
  1. LUMIZYME [Suspect]
     Active Substance: ALGLUCOSIDASE ALFA
     Indication: GLYCOGEN STORAGE DISEASE TYPE II
     Route: 041
     Dates: start: 2016

REACTIONS (2)
  - Musculoskeletal pain [Not Recovered/Not Resolved]
  - Limb discomfort [Not Recovered/Not Resolved]
